FAERS Safety Report 5140644-5 (Version None)
Quarter: 2006Q4

REPORT INFORMATION
  Report Type: 
  Country: None (occurrence: None)
  Receive Date: 20061025
  Receipt Date: 20061009
  Transmission Date: 20070319
  Serious: Yes (Hospitalization)
  Sender: FDA-Public Use
  Company Number: DSA_28831_2006

PATIENT
  Age: 46 Year
  Sex: Female

DRUGS (5)
  1. TAVOR  /00273201/ [Suspect]
     Dosage: 20 MG ONCE PO
     Route: 048
     Dates: start: 20061007, end: 20061007
  2. DIAZEPAM [Suspect]
     Dosage: 70 MG ONCE PO
     Route: 048
     Dates: start: 20061007, end: 20061007
  3. ROHYPNOL [Suspect]
     Dosage: 1 MG ONCE PO
     Route: 048
     Dates: start: 20061007, end: 20061007
  4. ZOLPIDEM TARTRATE [Suspect]
     Dosage: 30 MG ONCE PO
     Route: 048
     Dates: start: 20061007, end: 20061007
  5. ALCOHOL [Suspect]
     Dates: start: 20061007, end: 20061007

REACTIONS (5)
  - BLOOD ALCOHOL INCREASED [None]
  - DRUG ABUSER [None]
  - INCORRECT DOSE ADMINISTERED [None]
  - SOMNOLENCE [None]
  - TACHYCARDIA [None]
